FAERS Safety Report 4339189-1 (Version None)
Quarter: 2004Q2

REPORT INFORMATION
  Report Type: 
  Country: None (occurrence: None)
  Receive Date: 20040412
  Receipt Date: 20040330
  Transmission Date: 20050107
  Serious: Yes (Hospitalization, Other)
  Sender: FDA-Public Use
  Company Number: US-JNJFOC-20030602388

PATIENT
  Age: 81 Year
  Sex: Female
  Weight: 45.3597 kg

DRUGS (6)
  1. REMICADE [Suspect]
     Indication: RHEUMATOID ARTHRITIS
     Dosage: 1 IN 8 WEEK, INTRAVENOUS
     Route: 042
     Dates: start: 20020617, end: 20020801
  2. METHOTREXATE [Concomitant]
  3. CELEBREX [Concomitant]
  4. FOLIC ACID [Concomitant]
  5. ASPIRIN [Concomitant]
  6. ULTRAM [Concomitant]

REACTIONS (16)
  - ANAPHYLACTOID REACTION [None]
  - ANGIONEUROTIC OEDEMA [None]
  - CHEST PAIN [None]
  - DYSPHAGIA [None]
  - HYPERTENSION [None]
  - IMMUNODEFICIENCY [None]
  - LABORATORY TEST ABNORMAL [None]
  - NEUTROPHIL TOXIC GRANULATION PRESENT [None]
  - OEDEMA [None]
  - PLEURAL EFFUSION [None]
  - PLEURITIC PAIN [None]
  - PNEUMOCOCCAL SEPSIS [None]
  - PNEUMONIA KLEBSIELLA [None]
  - PNEUMONIA PNEUMOCOCCAL [None]
  - RASH [None]
  - STRIDOR [None]
